FAERS Safety Report 10253444 (Version 2)
Quarter: 2014Q2

REPORT INFORMATION
  Report Type: Report from Study
  Country: AT (occurrence: AT)
  Receive Date: 20140623
  Receipt Date: 20140623
  Transmission Date: 20141212
  Serious: Yes (Hospitalization, Other)
  Sender: FDA-Public Use
  Company Number: AT-ABBVIE-08P-009-0475411-00

PATIENT
  Age: 36 Year
  Sex: Male
  Weight: 68 kg

DRUGS (4)
  1. HUMIRA [Suspect]
     Indication: CROHN^S DISEASE
     Route: 058
     Dates: start: 20080430, end: 20080525
  2. HUMIRA [Suspect]
     Route: 058
     Dates: start: 20080909
  3. AZATHIOPRINE [Concomitant]
     Indication: CROHN^S DISEASE
     Dates: start: 199705, end: 200808
  4. PANTOLOC [Concomitant]
     Indication: PROPHYLAXIS
     Dates: start: 20080803, end: 20080813

REACTIONS (3)
  - Large intestinal stenosis [Recovered/Resolved]
  - Enterocolonic fistula [Recovered/Resolved]
  - Crohn^s disease [Recovered/Resolved]
